FAERS Safety Report 17108013 (Version 2)
Quarter: 2019Q4

REPORT INFORMATION
  Report Type: Report from Study
  Country: US (occurrence: US)
  Receive Date: 20191203
  Receipt Date: 20191209
  Transmission Date: 20200122
  Serious: Yes (Hospitalization, Other)
  Sender: FDA-Public Use
  Company Number: US-ELI_LILLY_AND_COMPANY-US201911014048

PATIENT
  Age: 74 Year
  Sex: Female

DRUGS (12)
  1. INSULIN, LISPRO [Suspect]
     Active Substance: INSULIN LISPRO
     Dosage: 3 U, UNKNOWN
     Route: 065
  2. INSULIN, LISPRO [Suspect]
     Active Substance: INSULIN LISPRO
     Dosage: 5 U, EACH MORNING
     Route: 065
  3. METOPROLOL. [Concomitant]
     Active Substance: METOPROLOL
     Indication: PRODUCT USED FOR UNKNOWN INDICATION
  4. INSULIN, LISPRO [Suspect]
     Active Substance: INSULIN LISPRO
     Dosage: 21 U, EACH EVENING
     Route: 065
  5. CORTISONE [Suspect]
     Active Substance: CORTISONE
     Indication: PRODUCT USED FOR UNKNOWN INDICATION
     Dosage: UNK, UNKNOWN
     Route: 065
     Dates: start: 20191125
  6. OXYCODONE [Concomitant]
     Active Substance: OXYCODONE
     Indication: KNEE ARTHROPLASTY
  7. INSULIN, LISPRO [Suspect]
     Active Substance: INSULIN LISPRO
     Indication: TYPE 2 DIABETES MELLITUS
     Dosage: 11 U, EACH MORNING
     Route: 065
  8. INSULIN, LISPRO [Suspect]
     Active Substance: INSULIN LISPRO
     Dosage: 10 U, EACH EVENING
     Route: 065
  9. OXYCONTIN [Concomitant]
     Active Substance: OXYCODONE HYDROCHLORIDE
     Indication: KNEE ARTHROPLASTY
  10. INSULIN, LISPRO [Suspect]
     Active Substance: INSULIN LISPRO
     Indication: TYPE 2 DIABETES MELLITUS
     Dosage: UNK UNK, UNKNOWN
     Route: 065
  11. INSULIN, LISPRO [Suspect]
     Active Substance: INSULIN LISPRO
     Dosage: 21 U, EACH EVENING
     Route: 065
  12. INSULIN, LISPRO [Suspect]
     Active Substance: INSULIN LISPRO
     Dosage: 3 U, UNKNOWN
     Route: 065

REACTIONS (11)
  - Hypoaesthesia [Unknown]
  - Gait disturbance [Unknown]
  - Blood glucose increased [Unknown]
  - Back injury [Unknown]
  - Head injury [Unknown]
  - Foot fracture [Unknown]
  - Underdose [Unknown]
  - Fall [Unknown]
  - Incorrect dose administered [Unknown]
  - Joint injury [Unknown]
  - Neck injury [Unknown]

NARRATIVE: CASE EVENT DATE: 20191126
